FAERS Safety Report 4968436-8 (Version None)
Quarter: 2006Q2

REPORT INFORMATION
  Report Type: 
  Country: None (occurrence: None)
  Receive Date: 20060410
  Receipt Date: 20051205
  Transmission Date: 20061013
  Serious: Yes (Death, Hospitalization, Other)
  Sender: FDA-Public Use
  Company Number: US-MERCK-0512USA00830

PATIENT
  Age: 73 Year
  Sex: Male
  Weight: 84 kg

DRUGS (7)
  1. VIOXX [Suspect]
     Indication: ARTHRALGIA
     Route: 048
     Dates: start: 20000303, end: 20031105
  2. ACETAMINOPHEN AND PROPOXYPHENE NAPSYLATE [Concomitant]
     Indication: ARTHRALGIA
     Route: 065
     Dates: start: 20001003, end: 20011201
  3. METHYLPREDNISOLONE [Concomitant]
     Indication: ARTHRALGIA
     Route: 065
     Dates: start: 20021212, end: 20030101
  4. ULTRACET [Concomitant]
     Indication: ARTHRALGIA
     Route: 065
     Dates: start: 20020611, end: 20020701
  5. BISOPROLOL FUMARATE AND HYDROCHLOROTHIAZIDE [Concomitant]
     Indication: HYPERTENSION
     Route: 065
     Dates: start: 20010101
  6. ACETAMINOPHEN AND HYDROCODONE BITARTRATE [Concomitant]
     Indication: ARTHRALGIA
     Route: 065
     Dates: start: 20021203, end: 20030201
  7. DIPROLENE [Concomitant]
     Indication: BACTERIAL INFECTION
     Route: 065

REACTIONS (5)
  - DEATH [None]
  - HYPERTENSION [None]
  - MYOCARDIAL INFARCTION [None]
  - PAIN IN EXTREMITY [None]
  - ULCER HAEMORRHAGE [None]
